FAERS Safety Report 5608200-X (Version None)
Quarter: 2008Q1

REPORT INFORMATION
  Report Type: 
  Country: None (occurrence: None)
  Receive Date: 20080130
  Receipt Date: 20080121
  Transmission Date: 20080703
  Serious: Yes (Other)
  Sender: FDA-Public Use
  Company Number: US-ROCHE-542460

PATIENT
  Sex: Male

DRUGS (1)
  1. TAMIFLU [Suspect]
     Dosage: 2 DOSES.
     Route: 065
     Dates: start: 20080120

REACTIONS (3)
  - CONFUSIONAL STATE [None]
  - DELIRIUM [None]
  - HYPERHIDROSIS [None]
